FAERS Safety Report 25250208 (Version 2)
Quarter: 2025Q2

REPORT INFORMATION
  Report Type: Report from Study
  Country: US (occurrence: US)
  Receive Date: 20250429
  Receipt Date: 20250606
  Transmission Date: 20250717
  Serious: Yes (Other)
  Sender: JOHNSON AND JOHNSON
  Company Number: US-JNJFOC-20250438064

PATIENT
  Age: 46 Year
  Sex: Female

DRUGS (5)
  1. SPRAVATO [Suspect]
     Active Substance: ESKETAMINE
     Indication: Depression
     Route: 045
     Dates: start: 20250414, end: 20250414
  2. SPRAVATO [Suspect]
     Active Substance: ESKETAMINE
     Route: 045
     Dates: start: 20250417, end: 20250417
  3. SPRAVATO [Suspect]
     Active Substance: ESKETAMINE
     Route: 045
     Dates: start: 20250401, end: 20250410
  4. TRAZODONE [Concomitant]
     Active Substance: TRAZODONE HYDROCHLORIDE
     Indication: Product used for unknown indication
  5. CYMBALTA [Concomitant]
     Active Substance: DULOXETINE HYDROCHLORIDE
     Indication: Product used for unknown indication

REACTIONS (2)
  - Dissociation [Recovered/Resolved]
  - Dizziness [Recovered/Resolved]

NARRATIVE: CASE EVENT DATE: 20250417
